FAERS Safety Report 6309659-5 (Version None)
Quarter: 2009Q3

REPORT INFORMATION
  Report Type: 
  Country: None (occurrence: None)
  Receive Date: 20090814
  Receipt Date: 20090807
  Transmission Date: 20100115
  Serious: Yes (Hospitalization, Other)
  Sender: FDA-Public Use
  Company Number: PHHY2009CA17403

PATIENT
  Sex: Female

DRUGS (1)
  1. SANDOSTATIN LAR [Suspect]
     Indication: SHORT-BOWEL SYNDROME
     Dosage: 20 MG, QMO
     Route: 030
     Dates: start: 20081215

REACTIONS (3)
  - DIARRHOEA [None]
  - PULMONARY OEDEMA [None]
  - SPINAL FRACTURE [None]
